FAERS Safety Report 17984105 (Version 1)
Quarter: 2020Q3

REPORT INFORMATION
  Report Type: Spontaneous
  Country: US (occurrence: US)
  Receive Date: 20200706
  Receipt Date: 20200706
  Transmission Date: 20201103
  Serious: Yes (Hospitalization)
  Sender: FDA-Public Use
  Company Number: US-UPSHER-SMITH LABORATORIES, LLC-2020USL00327

PATIENT
  Age: 44 Year
  Sex: Male
  Weight: 74.83 kg

DRUGS (2)
  1. HALOPERIDOL. [Suspect]
     Active Substance: HALOPERIDOL
     Indication: AGGRESSION
     Dosage: 2 MG, 1X/DAY AT NIGHT
     Route: 048
     Dates: start: 2019, end: 202005
  2. NATUREMADE 50 PLUS MULTIPLE VITAMIN FOR MEN [Concomitant]
     Dosage: UNK, 1X/DAY

REACTIONS (7)
  - Testicular pain [Recovering/Resolving]
  - Decreased appetite [Not Recovered/Not Resolved]
  - Pruritus [Not Recovered/Not Resolved]
  - Testicular disorder [Recovering/Resolving]
  - Acne [Recovering/Resolving]
  - Testicular swelling [Recovering/Resolving]
  - Skin infection [Recovering/Resolving]

NARRATIVE: CASE EVENT DATE: 2019
